FAERS Safety Report 21601219 (Version 2)
Quarter: 2022Q4

REPORT INFORMATION
  Report Type: Spontaneous
  Country: IT (occurrence: IT)
  Receive Date: 20221116
  Receipt Date: 20221229
  Transmission Date: 20230113
  Serious: Yes (Other)
  Sender: FDA-Public Use
  Company Number: None

PATIENT
  Age: 39 Year
  Sex: Female
  Weight: 67 kg

DRUGS (3)
  1. FILGRASTIM [Suspect]
     Active Substance: FILGRASTIM
     Indication: Colony stimulating factor therapy
     Dosage: 30 10*6.IU (FREQ:24 H;DAL 21 ,9,2022 AL 25/10/2022   6 FIALE DI NIVESTIM 30MUI . IL 26 /10 RISCONTRO
     Route: 058
     Dates: start: 20221021, end: 20221028
  2. EPIRUBICIN HYDROCHLORIDE [Concomitant]
     Active Substance: EPIRUBICIN HYDROCHLORIDE
     Indication: Undifferentiated sarcoma
     Dosage: 35 MG / MQ G 1,2,3 Q 21
     Route: 042
     Dates: start: 20221017, end: 20221019
  3. IFOSFAMIDE [Concomitant]
     Active Substance: IFOSFAMIDE
     Indication: Undifferentiated sarcoma
     Dosage: 3000 MG/M2
     Dates: start: 20221017, end: 20221019

REACTIONS (4)
  - Thrombocytopenia [Recovered/Resolved]
  - Pyrexia [Recovered/Resolved]
  - Neutropenia [Recovered/Resolved]
  - Oral candidiasis [Recovered/Resolved]

NARRATIVE: CASE EVENT DATE: 20221025
